FAERS Safety Report 14544386 (Version 6)
Quarter: 2019Q2

REPORT INFORMATION
  Report Type: Report from Study
  Country: DE (occurrence: DE)
  Receive Date: 20180216
  Receipt Date: 20190503
  Transmission Date: 20190711
  Serious: Yes (Death, Hospitalization, Other)
  Sender: FDA-Public Use
  Company Number: DE-BRISTOL-MYERS SQUIBB COMPANY-BMS-2017-121051

PATIENT
  Age: 63 Year
  Sex: Male
  Weight: 61 kg

DRUGS (14)
  1. SPIOLTO RESPIMAT [Concomitant]
     Active Substance: OLODATEROL HYDROCHLORIDE\TIOTROPIUM BROMIDE MONOHYDRATE
     Indication: CHRONIC OBSTRUCTIVE PULMONARY DISEASE
     Dosage: 2 DF, UNK
     Route: 055
     Dates: start: 20170818
  2. NIVOLUMAB [Suspect]
     Active Substance: NIVOLUMAB
     Indication: LUNG NEOPLASM MALIGNANT
     Dosage: 1 DOSAGE FORM, Q2WK
     Route: 065
     Dates: start: 20170522, end: 20171009
  3. PREDNISON [Concomitant]
     Active Substance: PREDNISONE
     Indication: COUGH
     Route: 065
  4. TACHOLIQUIN [Concomitant]
     Indication: BRONCHIAL CARCINOMA
     Dosage: 5 UNK, UNK
     Route: 055
     Dates: start: 201706
  5. DULCOLAX (BISACODYL) [Concomitant]
     Active Substance: BISACODYL
     Indication: CONSTIPATION
     Dosage: 1 TAB, PRN
     Route: 048
     Dates: start: 20170619
  6. ASPIRIN. [Concomitant]
     Active Substance: ASPIRIN
     Indication: PERIPHERAL VASCULAR DISORDER
     Dosage: 100 MG, QD
     Route: 048
     Dates: start: 2002
  7. MORPHIN                            /00036302/ [Concomitant]
     Active Substance: MORPHINE SULFATE
     Indication: TUMOUR PAIN
     Dosage: 40 MG, UNK
     Route: 048
     Dates: start: 20170915
  8. NIVOLUMAB [Suspect]
     Active Substance: NIVOLUMAB
     Indication: MALIGNANT MELANOMA
     Route: 065
  9. TACHOLIQUIN [Concomitant]
     Indication: COUGH
     Route: 065
  10. PREGABALIN. [Concomitant]
     Active Substance: PREGABALIN
     Indication: POLYNEUROPATHY
     Dosage: 75 MG, QD
     Route: 048
     Dates: start: 20170623
  11. FLUTIDE [Concomitant]
     Active Substance: FLUTICASONE PROPIONATE
     Indication: CHRONIC OBSTRUCTIVE PULMONARY DISEASE
     Dosage: 500 ?G, UNK
     Route: 055
     Dates: start: 20170703
  12. PANTOPRAZOL [Concomitant]
     Active Substance: PANTOPRAZOLE SODIUM
     Indication: PROPHYLAXIS
     Dosage: 20 MG, UNK
     Route: 048
     Dates: start: 20171009
  13. SALBUTAMOL [Concomitant]
     Active Substance: ALBUTEROL
     Indication: CHRONIC OBSTRUCTIVE PULMONARY DISEASE
     Dosage: 20 GTT, UNK
     Route: 055
     Dates: start: 201704
  14. PREDNISON [Concomitant]
     Active Substance: PREDNISONE
     Indication: BRONCHIAL CARCINOMA
     Dosage: 10 MG, UNK
     Route: 048
     Dates: start: 201702

REACTIONS (2)
  - Malignant neoplasm progression [Fatal]
  - Staphylococcal sepsis [Fatal]

NARRATIVE: CASE EVENT DATE: 20171013
